FAERS Safety Report 6157845-X (Version None)
Quarter: 2009Q2

REPORT INFORMATION
  Report Type: 
  Country: None (occurrence: None)
  Receive Date: 20090414
  Receipt Date: 20090331
  Transmission Date: 20091009
  Serious: Yes (Death)
  Sender: FDA-Public Use
  Company Number: 2009000986

PATIENT
  Age: 61 Year
  Sex: Female

DRUGS (8)
  1. ERLOTINIB (ERLOTINIB) (TABLET) (ERLOTINIB) [Suspect]
     Indication: PANCREATIC CARCINOMA
     Dosage: 100 MG ORAL
     Route: 048
     Dates: start: 20081219, end: 20090324
  2. GEMCITABINE [Suspect]
     Indication: PANCREATIC CARCINOMA
     Dosage: 1840 MG Q4W, INTRAVENOUS
     Route: 042
     Dates: start: 20081219, end: 20090324
  3. CITALOPRAM HYDROBROMIDE [Concomitant]
  4. BROMACEPAN (BROMAZEPAM) [Concomitant]
  5. DALTEPARIN (HEPARIN-FRACTION, SODIUM SALT) [Concomitant]
  6. CIPROFLOXACIN [Concomitant]
  7. ESPIRONOLACTONA (SPIRONOLACTONE) [Concomitant]
  8. FENTANILO (FENTANYL) [Concomitant]

REACTIONS (2)
  - GENERAL PHYSICAL HEALTH DETERIORATION [None]
  - PULMONARY EMBOLISM [None]
